FAERS Safety Report 14627034 (Version 1)
Quarter: 2018Q1

REPORT INFORMATION
  Report Type: Report from Study
  Country: CA (occurrence: CA)
  Receive Date: 20180312
  Receipt Date: 20180312
  Transmission Date: 20180509
  Serious: Yes (Other)
  Sender: FDA-Public Use
  Company Number: CA-JNJFOC-20180308845

PATIENT
  Age: 33 Year
  Sex: Male
  Weight: 95.71 kg

DRUGS (1)
  1. REMICADE [Suspect]
     Active Substance: INFLIXIMAB
     Indication: COLITIS ULCERATIVE
     Dosage: STRENGTH = 900 MG
     Route: 042
     Dates: start: 20140911

REACTIONS (3)
  - Off label use [Unknown]
  - Salmonellosis [Recovered/Resolved]
  - Product use issue [Unknown]

NARRATIVE: CASE EVENT DATE: 20140911
